FAERS Safety Report 9702157 (Version 5)
Quarter: 2014Q2

REPORT INFORMATION
  Report Type: Spontaneous
  Country: US (occurrence: None)
  Receive Date: 20131119
  Receipt Date: 20140516
  Transmission Date: 20141212
  Serious: Yes (Hospitalization)
  Sender: FDA-Public Use
  Company Number: 2009174

PATIENT
  Age: 57 Year
  Sex: Male
  Weight: 118.18 kg

DRUGS (14)
  1. BUPIVACAINE HCL [Suspect]
     Indication: PAIN
     Dosage: 1.5 MG MILLIGRAM(S), UNKNOWN, OTHER?
     Route: 050
     Dates: start: 20131029
  2. ORTHOVISC [Concomitant]
  3. BETADINE [Concomitant]
  4. AMITRIPTYLINE [Concomitant]
  5. ASPIRIN [Concomitant]
  6. CARVEDILOL [Concomitant]
  7. CLOPIDOGREL [Concomitant]
  8. FUROSEMIDE [Concomitant]
  9. ACETAMINOPHEN W/HYDROCODONE [Concomitant]
  10. ISOSORBIDE MONONITRATE [Concomitant]
  11. LORAZEPAM [Concomitant]
  12. METHOTREXATE [Concomitant]
  13. AMIODARONE [Concomitant]
  14. PRAVASTATIN [Concomitant]

REACTIONS (7)
  - Pain [None]
  - Staphylococcus test positive [None]
  - Joint swelling [None]
  - Concomitant disease progression [None]
  - Wrong technique in drug usage process [None]
  - Product sterility lacking [None]
  - Staphylococcus test positive [None]
